FAERS Safety Report 24734227 (Version 1)
Quarter: 2024Q4

REPORT INFORMATION
  Report Type: Spontaneous
  Country: IN (occurrence: IN)
  Receive Date: 20241214
  Receipt Date: 20241214
  Transmission Date: 20250115
  Serious: No
  Sender: ALKEM
  Company Number: IN-ALKEM LABORATORIES LIMITED-IN-ALKEM-2024-22599

PATIENT

DRUGS (1)
  1. MYCOPHENOLATE MOFETIL [Suspect]
     Active Substance: MYCOPHENOLATE MOFETIL
     Indication: Nephrotic syndrome
     Dosage: (800-1200 MILLIGRAM PER SQUARE METRE), (IN TWO DIVIDED DOSES FOR AT LEAST 12 MONTHS)
     Route: 048

REACTIONS (1)
  - Urinary tract infection [Unknown]
